FAERS Safety Report 26026049 (Version 1)
Quarter: 2025Q4

REPORT INFORMATION
  Report Type: Spontaneous
  Country: US (occurrence: US)
  Receive Date: 20251111
  Receipt Date: 20251111
  Transmission Date: 20260117
  Serious: No
  Sender: PFIZER
  Company Number: US-PFIZER INC-PV202400080902

PATIENT
  Age: 65 Year
  Sex: Female

DRUGS (3)
  1. TUKYSA [Suspect]
     Active Substance: TUCATINIB
     Indication: Breast cancer female
     Dosage: 1 50MG TABLET TWICE A DAY AND 150MG, 1 TABLET TWICE A DAY, FOR TOTAL OF 250MG TWICE A DAY
  2. TUKYSA [Suspect]
     Active Substance: TUCATINIB
     Dosage: 1 TABLET OF 50MG W/ 1 TABLET OF 150MG TWICE A DAY FOR A TOTAL OF 200MG TWICE A DAY
     Route: 048
  3. TUKYSA [Suspect]
     Active Substance: TUCATINIB
     Dosage: 150 MG

REACTIONS (3)
  - Liver disorder [Unknown]
  - Off label use [Unknown]
  - Product prescribing error [Unknown]
